FAERS Safety Report 6766846-X (Version None)
Quarter: 2010Q2

REPORT INFORMATION
  Report Type: 
  Country: None (occurrence: None)
  Receive Date: 20100611
  Receipt Date: 20100601
  Transmission Date: 20101027
  Serious: Yes (Other)
  Sender: FDA-Public Use
  Company Number: NL-WATSON-2010-07434

PATIENT
  Age: 82 Year
  Sex: Female

DRUGS (1)
  1. CIPROFLOXACIN HCL [Suspect]
     Indication: INFECTION
     Dosage: 500 MG, BID

REACTIONS (2)
  - HAEMORRHAGIC DISORDER [None]
  - VASCULITIS [None]
